FAERS Safety Report 6176925-6 (Version None)
Quarter: 2009Q2

REPORT INFORMATION
  Report Type: 
  Country: None (occurrence: None)
  Receive Date: 20090501
  Receipt Date: 20090105
  Transmission Date: 20091009
  Serious: Yes (Other)
  Sender: FDA-Public Use
  Company Number: US-ALEXION-A200900005

PATIENT
  Sex: Female

DRUGS (1)
  1. SOLIRIS [Suspect]
     Dosage: 900 MG, EVERY 12 DAYS

REACTIONS (3)
  - ABDOMINAL PAIN [None]
  - HAEMOLYSIS [None]
  - INTRACRANIAL PRESSURE INCREASED [None]
